FAERS Safety Report 13670022 (Version 3)
Quarter: 2017Q3

REPORT INFORMATION
  Report Type: Spontaneous
  Country: US (occurrence: US)
  Receive Date: 20170620
  Receipt Date: 20170808
  Transmission Date: 20171127
  Serious: No
  Sender: FDA-Public Use
  Company Number: US-ASTRAZENECA-2017SE63493

PATIENT
  Age: 740 Month
  Sex: Female

DRUGS (1)
  1. TUDORZA PRESSAIR [Suspect]
     Active Substance: ACLIDINIUM BROMIDE
     Indication: ASTHMA
     Route: 055
     Dates: start: 201608

REACTIONS (6)
  - Wrong technique in device usage process [Unknown]
  - Product use issue [Not Recovered/Not Resolved]
  - Off label use [Not Recovered/Not Resolved]
  - Adverse event [Unknown]
  - Confusional state [Unknown]
  - Device malfunction [Unknown]

NARRATIVE: CASE EVENT DATE: 201608
